FAERS Safety Report 10091768 (Version 1)
Quarter: 2014Q2

REPORT INFORMATION
  Report Type: Spontaneous
  Country: US (occurrence: US)
  Receive Date: 20140421
  Receipt Date: 20140421
  Transmission Date: 20141212
  Serious: No
  Sender: FDA-Public Use
  Company Number: US-PURDUE-USA-2006-0025492

PATIENT
  Sex: Male

DRUGS (3)
  1. OXYIR CAPSULES 5 MG [Suspect]
     Indication: BREAKTHROUGH PAIN
     Dosage: UNK, SEE TEXT
     Dates: start: 2002
  2. OXYCODONE HYDROCHLORIDE (SIMILAR TO NDA 20-553) [Concomitant]
     Indication: PAIN
  3. OXYCONTIN TABLETS [Concomitant]
     Indication: PAIN

REACTIONS (1)
  - Pain [Unknown]
